FAERS Safety Report 5175199-2 (Version None)
Quarter: 2006Q4

REPORT INFORMATION
  Report Type: 
  Country: None (occurrence: None)
  Receive Date: 20061206
  Receipt Date: 20061128
  Transmission Date: 20070319
  Serious: Yes (Death, Hospitalization)
  Sender: FDA-Public Use
  Company Number: TAP2006Q01940

PATIENT
  Age: 64 Year
  Sex: Male

DRUGS (1)
  1. LUPRON DEPOT-3 [Suspect]
     Indication: PROSTATE CANCER
     Dosage: 22.5 MG, 1 IN 3 M, INTRAMUSCULAR
     Route: 030
     Dates: start: 20061109, end: 20061109

REACTIONS (3)
  - DYSPNOEA [None]
  - FLUID RETENTION [None]
  - PULMONARY OEDEMA [None]
